FAERS Safety Report 8457449 (Version 6)
Quarter: 2013Q1

REPORT INFORMATION
  Report Type: Spontaneous
  Country: US (occurrence: US)
  Receive Date: 20120314
  Receipt Date: 20130207
  Transmission Date: 20140127
  Serious: Yes (Death)
  Sender: FDA-Public Use
  Company Number: US-JNJFOC-20120305232

PATIENT
  Sex: Female
  Weight: 65.77 kg

DRUGS (5)
  1. TYLENOL [Suspect]
     Indication: DYSMENORRHOEA
     Route: 048
  2. TYLENOL [Suspect]
     Indication: PAIN
     Route: 048
  3. NYQUIL [Suspect]
     Indication: DYSMENORRHOEA
  4. NYQUIL [Suspect]
     Indication: NASOPHARYNGITIS
  5. NYQUIL [Suspect]
     Indication: INFLUENZA

REACTIONS (5)
  - Hepatic failure [Fatal]
  - Toxicity to various agents [Fatal]
  - Multi-organ failure [Fatal]
  - Brain injury [Fatal]
  - Drug administration error [Fatal]
